FAERS Safety Report 4591205-8 (Version None)
Quarter: 2005Q1

REPORT INFORMATION
  Report Type: 
  Country: None (occurrence: None)
  Receive Date: 20050222
  Receipt Date: 20050211
  Transmission Date: 20050727
  Serious: Yes (Life-Threatening)
  Sender: FDA-Public Use
  Company Number: 2004-12-0907

PATIENT
  Age: 50 Year
  Sex: Female

DRUGS (4)
  1. PEG-INTRON [Suspect]
     Indication: HEPATITIS C
     Dosage: 80 UG QW SUBCUTANEOUS
     Route: 058
     Dates: start: 20040723, end: 20041213
  2. REBETOL [Suspect]
     Indication: HEPATITIS C
     Dosage: 800 MG QD ORAL
     Route: 048
     Dates: start: 20040723, end: 20041213
  3. PAROXETINE HYDROCHLORIDE [Concomitant]
  4. TAVOR [Concomitant]

REACTIONS (2)
  - HEAD INJURY [None]
  - STATUS EPILEPTICUS [None]
